FAERS Safety Report 5903562-8 (Version None)
Quarter: 2008Q3

REPORT INFORMATION
  Report Type: 
  Country: None (occurrence: None)
  Receive Date: 20080930
  Receipt Date: 20080925
  Transmission Date: 20090109
  Serious: Yes (Hospitalization)
  Sender: FDA-Public Use
  Company Number: FR-ABBOTT-07P-056-0415540-00

PATIENT
  Sex: Female
  Weight: 1.3 kg

DRUGS (8)
  1. KALETRA [Suspect]
     Indication: HIV INFECTION
     Route: 048
     Dates: start: 20070712, end: 20070715
  2. ZIDOVUDINE [Suspect]
     Indication: HIV INFECTION
     Route: 042
     Dates: start: 20070712, end: 20070717
  3. ZIDOVUDINE [Suspect]
     Route: 042
     Dates: start: 20070717, end: 20070726
  4. ZIDOVUDINE [Suspect]
     Dates: start: 20070711, end: 20070711
  5. LAMIVUDINE [Suspect]
     Indication: HIV INFECTION
     Route: 048
     Dates: start: 20070712, end: 20070726
  6. NEVIRAPINE [Suspect]
     Indication: HIV INFECTION
     Route: 048
     Dates: start: 20070711, end: 20070712
  7. NEVIRAPINE [Suspect]
     Dates: start: 20070613, end: 20070614
  8. NEVIRAPINE [Suspect]
     Dates: start: 20070615, end: 20070616

REACTIONS (5)
  - DRUG LEVEL INCREASED [None]
  - GASTROINTESTINAL DISORDER [None]
  - HAEMATOCHEZIA [None]
  - OVERDOSE [None]
  - RENAL FAILURE ACUTE [None]
